APPROVED DRUG PRODUCT: TEKTURNA
Active Ingredient: ALISKIREN HEMIFUMARATE
Strength: EQ 37.5MG BASE
Dosage Form/Route: CAPSULE, PELLET;ORAL
Application: N210709 | Product #001
Applicant: NODEN PHARMA DAC
Approved: Nov 14, 2017 | RLD: Yes | RS: No | Type: DISCN